FAERS Safety Report 6241244-6 (Version None)
Quarter: 2009Q2

REPORT INFORMATION
  Report Type: 
  Country: None (occurrence: None)
  Receive Date: 20090617
  Receipt Date: 20071218
  Transmission Date: 20091009
  Serious: No
  Sender: FDA-Public Use
  Company Number: 270359

PATIENT
  Sex: Female
  Weight: 91 kg

DRUGS (2)
  1. LEVEMIR [Suspect]
     Indication: DIABETES MELLITUS
  2. AVANDIA [Concomitant]

REACTIONS (1)
  - BLOOD GLUCOSE INCREASED [None]
